FAERS Safety Report 7435371-5 (Version None)
Quarter: 2011Q2

REPORT INFORMATION
  Report Type: 
  Country: None (occurrence: None)
  Receive Date: 20110425
  Receipt Date: 20110415
  Transmission Date: 20111010
  Serious: Yes (Hospitalization)
  Sender: FDA-Public Use
  Company Number: BR-ASTRAZENECA-2011SE22177

PATIENT
  Age: 46 Year
  Sex: Male

DRUGS (1)
  1. SYMBICORT [Suspect]
     Indication: BRONCHITIS
     Dosage: 320/9 UG
     Route: 055
     Dates: start: 20060101, end: 20110401

REACTIONS (2)
  - PNEUMONIA [None]
  - DYSPNOEA [None]
